FAERS Safety Report 17914496 (Version 3)
Quarter: 2023Q2

REPORT INFORMATION
  Report Type: Spontaneous
  Country: JP (occurrence: None)
  Receive Date: 20200619
  Receipt Date: 20230609
  Transmission Date: 20230722
  Serious: Yes (Other)
  Sender: FDA-Public Use
  Company Number: 2019SF00582

PATIENT
  Age: 37 Year

DRUGS (2)
  1. LYNPARZA [Suspect]
     Active Substance: OLAPARIB
     Indication: Breast cancer
     Dosage: DOESE REDUCED150.0MG UNKNOWN
     Route: 048
     Dates: start: 20180921
  2. LYNPARZA [Suspect]
     Active Substance: OLAPARIB
     Indication: Breast cancer
     Dosage: 150.0MG UNKNOWN
     Route: 048
     Dates: end: 201903

REACTIONS (4)
  - Abscess [Recovering/Resolving]
  - Anaemia [Recovering/Resolving]
  - Neutrophil count decreased [Recovering/Resolving]
  - Nausea [Recovering/Resolving]

NARRATIVE: CASE EVENT DATE: 20180921
